FAERS Safety Report 17897424 (Version 1)
Quarter: 2020Q2

REPORT INFORMATION
  Report Type: Spontaneous
  Country: CN (occurrence: CN)
  Receive Date: 20200616
  Receipt Date: 20200616
  Transmission Date: 20200714
  Serious: Yes (Other)
  Sender: FDA-Public Use
  Company Number: CN-ROCHE-2622317

PATIENT
  Age: 69 Year
  Sex: Male

DRUGS (3)
  1. XELODA [Suspect]
     Active Substance: CAPECITABINE
     Indication: RECTAL ADENOCARCINOMA
     Route: 048
     Dates: start: 20190101
  2. RALTITREXED [Concomitant]
     Active Substance: RALTITREXED
     Indication: RECTAL ADENOCARCINOMA
     Route: 065
     Dates: start: 20190704
  3. OXALIPLATIN. [Concomitant]
     Active Substance: OXALIPLATIN
     Indication: RECTAL ADENOCARCINOMA
     Route: 065
     Dates: start: 20190704

REACTIONS (2)
  - Pneumonitis [Unknown]
  - Procedural haemorrhage [Unknown]
